FAERS Safety Report 7374249-2 (Version None)
Quarter: 2011Q1

REPORT INFORMATION
  Report Type: 
  Country: None (occurrence: None)
  Receive Date: 20110317
  Receipt Date: 20110301
  Transmission Date: 20110831
  Serious: Yes (Life-Threatening, Hospitalization)
  Sender: FDA-Public Use
  Company Number: 2011AC000019

PATIENT
  Age: 56 Year
  Sex: Male

DRUGS (28)
  1. WARFARIN SODIUM [Concomitant]
  2. NITROCYLCERIN [Concomitant]
  3. SPIRONOLACTONE [Concomitant]
  4. MAGNESIUM [Concomitant]
  5. POTASSIUM [Concomitant]
  6. SIMVASTATIN [Concomitant]
  7. DIGOXIN [Suspect]
     Indication: ARRHYTHMIA
     Dosage: 0.25 MG; QD;
     Dates: start: 19850101, end: 20080417
  8. NIASPAN [Concomitant]
  9. QUINAPRIL [Concomitant]
  10. COREG [Concomitant]
  11. DIGOXIN [Suspect]
     Dosage: 0.125 MG; QD; PO
     Route: 048
     Dates: start: 20080401
  12. ATORVASTATIN CALCIUM [Concomitant]
  13. GLIPIZIDE [Concomitant]
  14. MEGORMIN [Concomitant]
  15. CARDIZEM [Concomitant]
  16. FUROSEMIDE [Concomitant]
  17. CADUET [Concomitant]
  18. ISOSORBIDE DINITRATE [Concomitant]
  19. FISH OIL [Concomitant]
  20. VITAMIN B6 [Concomitant]
  21. AMIODARONE HCL [Concomitant]
  22. ASPIRIN [Concomitant]
  23. PRILOSEC [Concomitant]
  24. NORVASC [Concomitant]
  25. LOVASTATIN [Concomitant]
  26. LISINOPRIL [Concomitant]
  27. BETAPACE [Concomitant]
  28. CARDIA [Concomitant]

REACTIONS (40)
  - EMOTIONAL DISORDER [None]
  - HYPOAESTHESIA [None]
  - ABDOMINAL DISTENSION [None]
  - CARDIOACTIVE DRUG LEVEL BELOW THERAPEUTIC [None]
  - LEFT VENTRICULAR DYSFUNCTION [None]
  - HYPOXIA [None]
  - FALL [None]
  - ERECTILE DYSFUNCTION [None]
  - BARRETT'S OESOPHAGUS [None]
  - BUNDLE BRANCH BLOCK LEFT [None]
  - GASTROOESOPHAGEAL REFLUX DISEASE [None]
  - VENTRICULAR EXTRASYSTOLES [None]
  - VITAMIN D DEFICIENCY [None]
  - FLUSHING [None]
  - MITRAL VALVE INCOMPETENCE [None]
  - THERAPY REGIMEN CHANGED [None]
  - SUBCLAVIAN VEIN THROMBOSIS [None]
  - DIZZINESS [None]
  - NAUSEA [None]
  - CHEST DISCOMFORT [None]
  - ECONOMIC PROBLEM [None]
  - CORONARY ARTERY DISEASE [None]
  - ASTHENIA [None]
  - HYPERLIPIDAEMIA [None]
  - PALPITATIONS [None]
  - HYPOTENSION [None]
  - MALAISE [None]
  - VENTRICULAR TACHYCARDIA [None]
  - MYOCARDIAL INFARCTION [None]
  - FATIGUE [None]
  - TOXICITY TO VARIOUS AGENTS [None]
  - DYSPNOEA EXERTIONAL [None]
  - TRICUSPID VALVE INCOMPETENCE [None]
  - MENTAL DISORDER [None]
  - PLEURAL EFFUSION [None]
  - CARDIAC FAILURE CONGESTIVE [None]
  - DIARRHOEA [None]
  - DEPRESSION [None]
  - CARDIOACTIVE DRUG LEVEL ABOVE THERAPEUTIC [None]
  - SUPRAVENTRICULAR EXTRASYSTOLES [None]
